FAERS Safety Report 7513570-1 (Version None)
Quarter: 2011Q2

REPORT INFORMATION
  Report Type: 
  Country: None (occurrence: None)
  Receive Date: 20110531
  Receipt Date: 20110523
  Transmission Date: 20111010
  Serious: Yes (Hospitalization)
  Sender: FDA-Public Use
  Company Number: JP-ROCHE-779564

PATIENT
  Sex: Female
  Weight: 50 kg

DRUGS (12)
  1. ACTEMRA [Suspect]
     Indication: RHEUMATOID ARTHRITIS
     Route: 041
     Dates: start: 20100323, end: 20110315
  2. FAMOTIDINE [Concomitant]
     Dosage: DOSAGE IS UNCERTAIN.
     Route: 048
  3. BONALON [Concomitant]
     Dosage: DOSAGE IS UNCERTAIN, FORM: PERORAL AGENT
     Route: 048
  4. CARVEDILOL [Concomitant]
     Dosage: DOSAGE IS UNCERTAIN.
     Route: 048
  5. RHEUMATREX [Concomitant]
     Dosage: DOSAGE IS UNCERTAIN
     Route: 048
  6. RIMATIL [Concomitant]
     Dosage: DOSAGE IS UNCERTAIN.
     Route: 048
  7. WARFARIN POTASSIUM [Concomitant]
     Dosage: DOSAGE IS UNCERTAIN.
     Route: 048
  8. GLYBURIDE [Concomitant]
     Dosage: DOSAGE IS UNCERTAIN.
     Route: 048
  9. PRORENAL [Concomitant]
     Dosage: DOSAGE IS UNCERTAIN.
     Route: 048
  10. CELECOXIB [Concomitant]
     Dosage: DOSAGE IS UNCERTAIN
     Route: 048
  11. FOLIC ACID [Concomitant]
     Dosage: DOSAGE IS UNCERTAIN
     Route: 048
  12. PREDNISOLONE [Concomitant]
     Dosage: DOSAGE IS UNCERTAIN.
     Route: 048

REACTIONS (1)
  - SKIN ULCER [None]
